FAERS Safety Report 19924878 (Version 4)
Quarter: 2021Q4

REPORT INFORMATION
  Report Type: Report from Study
  Country: AE (occurrence: AE)
  Receive Date: 20211006
  Receipt Date: 20211116
  Transmission Date: 20220303
  Serious: Yes (Hospitalization, Other)
  Sender: FDA-Public Use
  Company Number: AE-AMGEN-ARESL2021153228

PATIENT
  Age: 15 Year
  Sex: Male

DRUGS (2)
  1. BLINCYTO [Suspect]
     Active Substance: BLINATUMOMAB
     Indication: B precursor type acute leukaemia
     Dosage: UNK
     Route: 065
     Dates: start: 20210926
  2. BLINCYTO [Suspect]
     Active Substance: BLINATUMOMAB
     Dosage: 56 MICROGRAM, EVERY 48 HOURS
     Route: 065

REACTIONS (3)
  - SARS-CoV-2 test positive [Unknown]
  - Unevaluable event [Unknown]
  - Disease progression [Unknown]

NARRATIVE: CASE EVENT DATE: 20210927
